FAERS Safety Report 18322567 (Version 2)
Quarter: 2020Q4

REPORT INFORMATION
  Report Type: Report from Study
  Country: PL (occurrence: PL)
  Receive Date: 20200928
  Receipt Date: 20201201
  Transmission Date: 20210113
  Serious: Yes (Death)
  Sender: FDA-Public Use
  Company Number: PL-EXELIXIS-XL18420033295

PATIENT
  Age: 72 Year
  Sex: Male
  Weight: 104 kg

DRUGS (3)
  1. CABOZANTINIB [Suspect]
     Active Substance: CABOZANTINIB
     Indication: RENAL CELL CARCINOMA
     Dosage: 60 MG DAILY
     Route: 048
     Dates: start: 20191127, end: 20191229
  2. CABOZANTINIB [Suspect]
     Active Substance: CABOZANTINIB
     Dosage: 40 MG, DAILY
     Route: 048
     Dates: start: 20200116, end: 20200216
  3. CABOZANTINIB [Suspect]
     Active Substance: CABOZANTINIB
     Dosage: 40 MG, DAILY
     Route: 048
     Dates: start: 20200225, end: 20200830

REACTIONS (1)
  - Death [Fatal]

NARRATIVE: CASE EVENT DATE: 20200917
